FAERS Safety Report 7003451-4 (Version None)
Quarter: 2010Q3

REPORT INFORMATION
  Report Type: 
  Country: None (occurrence: None)
  Receive Date: 20100920
  Receipt Date: 20100910
  Transmission Date: 20110219
  Serious: Yes (Hospitalization)
  Sender: FDA-Public Use
  Company Number: US-AMGEN-KDL437528

PATIENT
  Sex: Female

DRUGS (1)
  1. ENBREL [Suspect]
     Indication: ANKYLOSING SPONDYLITIS
     Route: 058
     Dates: start: 20100801, end: 20100828

REACTIONS (9)
  - ABASIA [None]
  - DIZZINESS [None]
  - HEADACHE [None]
  - HEART RATE IRREGULAR [None]
  - INJECTION SITE HAEMATOMA [None]
  - MUSCLE SPASMS [None]
  - MUSCULOSKELETAL STIFFNESS [None]
  - NAUSEA [None]
  - VOMITING [None]
